FAERS Safety Report 13212272 (Version 1)
Quarter: 2017Q1

REPORT INFORMATION
  Report Type: Spontaneous
  Country: CA (occurrence: CA)
  Receive Date: 20170210
  Receipt Date: 20170210
  Transmission Date: 20170428
  Serious: Yes (Hospitalization)
  Sender: FDA-Public Use
  Company Number: CA-ASTRAZENECA-2017SE14987

PATIENT
  Age: 64 Year
  Sex: Female
  Weight: 77.6 kg

DRUGS (16)
  1. ALVESCO [Suspect]
     Active Substance: CICLESONIDE
     Dosage: 400.0UG UNKNOWN
     Route: 055
  2. DETROL LA [Suspect]
     Active Substance: TOLTERODINE TARTRATE
     Route: 065
  3. DOMPERIDONE [Suspect]
     Active Substance: DOMPERIDONE
     Route: 065
  4. CRESTOR [Suspect]
     Active Substance: ROSUVASTATIN CALCIUM
     Route: 048
  5. CLARITHROMYCIN. [Suspect]
     Active Substance: CLARITHROMYCIN
     Dosage: NON AZ PRODUCT, 100 MG, DAILY
     Route: 065
  6. IMIPRAMINE HYDROCHLORIDE. [Suspect]
     Active Substance: IMIPRAMINE HYDROCHLORIDE
     Route: 065
  7. AERIUS [Suspect]
     Active Substance: DESLORATADINE
     Route: 048
  8. MONTELUKAST SODIUM. [Concomitant]
     Active Substance: MONTELUKAST SODIUM
     Route: 065
  9. ECOTRIN [Suspect]
     Active Substance: ASPIRIN
     Route: 065
  10. CLOPIDOGREL BISULFATE. [Suspect]
     Active Substance: CLOPIDOGREL BISULFATE
     Route: 065
  11. PANTOPRAZOLE [Suspect]
     Active Substance: PANTOPRAZOLE SODIUM
     Route: 065
  12. STELARA [Suspect]
     Active Substance: USTEKINUMAB
     Route: 065
  13. ATENOLOL. [Suspect]
     Active Substance: ATENOLOL
     Route: 048
  14. EZETROL [Suspect]
     Active Substance: EZETIMIBE
     Route: 048
  15. MAVIK [Suspect]
     Active Substance: TRANDOLAPRIL
     Route: 065
  16. SULCRATE [Suspect]
     Active Substance: SUCRALFATE
     Route: 065

REACTIONS (3)
  - Paranoia [Recovered/Resolved]
  - Hallucination, auditory [Recovered/Resolved]
  - Psychotic disorder [Recovered/Resolved]
